FAERS Safety Report 4984602-X (Version None)
Quarter: 2006Q2

REPORT INFORMATION
  Report Type: 
  Country: None (occurrence: None)
  Receive Date: 20060419
  Receipt Date: 20060406
  Transmission Date: 20061013
  Serious: Yes (Life-Threatening)
  Sender: FDA-Public Use
  Company Number: 2005022067

PATIENT
  Age: 65 Year
  Sex: Male

DRUGS (6)
  1. CELEBREX [Suspect]
     Indication: ILL-DEFINED DISORDER
     Dosage: ORAL
     Route: 048
  2. UFT [Suspect]
     Indication: ILL-DEFINED DISORDER
     Dosage: 6DF (3 IN 1 D), ORAL
     Route: 048
  3. GLYBURIDE [Concomitant]
  4. FUROSEMIDE [Concomitant]
  5. LERCANIDIPINE [Concomitant]
  6. ALL OTHER THERAPEUTIC PRODUCTS (ALL OTHER THERAPEUTIC PRODUCTS) [Concomitant]

REACTIONS (8)
  - ACUTE PULMONARY OEDEMA [None]
  - ATRIAL FIBRILLATION [None]
  - CARDIAC DISORDER [None]
  - CARDIAC FAILURE [None]
  - CHEST PAIN [None]
  - EJECTION FRACTION DECREASED [None]
  - MYOCARDIAL ISCHAEMIA [None]
  - TACHYARRHYTHMIA [None]
